FAERS Safety Report 16299469 (Version 1)
Quarter: 2019Q2

REPORT INFORMATION
  Report Type: Spontaneous
  Country: FR (occurrence: FR)
  Receive Date: 20190510
  Receipt Date: 20190510
  Transmission Date: 20190711
  Serious: Yes (Hospitalization, Other)
  Sender: FDA-Public Use
  Company Number: FR-SA-2019SA123591

PATIENT
  Age: 54 Year
  Sex: Female

DRUGS (6)
  1. RITONAVIR. [Interacting]
     Active Substance: RITONAVIR
     Indication: HIV INFECTION
  2. TRIAMCINOLONE ACETONIDE. [Suspect]
     Active Substance: TRIAMCINOLONE ACETONIDE
     Indication: ARTHRALGIA
     Dosage: 80 MG INJECTION, 1X
  3. TRIAMCINOLONE ACETONIDE. [Interacting]
     Active Substance: TRIAMCINOLONE ACETONIDE
     Indication: JOINT SWELLING
  4. TRIAMCINOLONE ACETONIDE. [Interacting]
     Active Substance: TRIAMCINOLONE ACETONIDE
     Indication: OSTEOARTHRITIS
  5. DARUNAVIR [Concomitant]
     Active Substance: DARUNAVIR
     Indication: HIV INFECTION
  6. EMTRICITABINE [Concomitant]
     Active Substance: EMTRICITABINE
     Indication: HIV INFECTION

REACTIONS (4)
  - Adrenal insufficiency [Recovering/Resolving]
  - Swelling face [Recovering/Resolving]
  - Asthenia [Recovering/Resolving]
  - Drug interaction [Recovering/Resolving]
